FAERS Safety Report 18783757 (Version 1)
Quarter: 2021Q1

REPORT INFORMATION
  Report Type: Spontaneous
  Country: CO (occurrence: CO)
  Receive Date: 20210125
  Receipt Date: 20210125
  Transmission Date: 20210419
  Serious: Yes (Other)
  Sender: FDA-Public Use
  Company Number: CO-AMGEN-COLSP2021009390

PATIENT
  Age: 53 Year
  Sex: Female
  Weight: 65 kg

DRUGS (7)
  1. DIPHENHYDRAMINE HYDROCHLORIDE. [Concomitant]
     Active Substance: DIPHENHYDRAMINE HYDROCHLORIDE
     Indication: OVARIAN CANCER
     Dosage: 10 MILLIGRAM
     Route: 042
     Dates: start: 20190716
  2. MVASI [Suspect]
     Active Substance: BEVACIZUMAB-AWWB
     Indication: OVARIAN CANCER
     Dosage: 650 MILLIGRAM
     Route: 042
     Dates: start: 20190716
  3. LIPOSOMAL DOXORUBICIN HCL [Concomitant]
     Active Substance: DOXORUBICIN HYDROCHLORIDE
     Indication: OVARIAN CANCER
     Dosage: 51.6 MILLIGRAM
     Route: 042
     Dates: start: 20190716
  4. FOSAPREPITANT [Concomitant]
     Active Substance: FOSAPREPITANT
     Indication: OVARIAN CANCER
     Dosage: 150 MILLIGRAM
     Route: 042
     Dates: start: 20190716
  5. ONDANSETRON [Concomitant]
     Active Substance: ONDANSETRON
     Indication: OVARIAN CANCER
     Dosage: 16 MILLIGRAM
     Route: 042
     Dates: start: 20190716
  6. DEXAMETHASONE PHOSPHATE [Concomitant]
     Active Substance: DEXAMETHASONE PHOSPHATE
     Indication: OVARIAN CANCER
     Dosage: 16 MILLIGRAM
     Route: 042
     Dates: start: 20190716
  7. CARBOPLATIN. [Concomitant]
     Active Substance: CARBOPLATIN
     Indication: OVARIAN CANCER
     Dosage: 542.25 MILLIGRAM
     Route: 042
     Dates: start: 20190716

REACTIONS (4)
  - Vomiting [Not Recovered/Not Resolved]
  - Oral candidiasis [Recovering/Resolving]
  - Abdominal pain [Recovering/Resolving]
  - Off label use [Unknown]

NARRATIVE: CASE EVENT DATE: 20190716
